FAERS Safety Report 9563454 (Version 1)
Quarter: 2013Q3

REPORT INFORMATION
  Report Type: Spontaneous
  Country: CA (occurrence: None)
  Receive Date: 20130926
  Receipt Date: 20130926
  Transmission Date: 20140515
  Serious: Yes (Other)
  Sender: FDA-Public Use
  Company Number: 2013-2092-SPO

PATIENT
  Age: 43 Year
  Sex: Female

DRUGS (3)
  1. ESTROGEL [Suspect]
     Dosage: 2 DF, QD, 1 IN 1 D, TOPICAL
     Route: 061
  2. VAGIFEM (ESTRADIOL) [Concomitant]
  3. VOLTAREN EMULGEL (DICLOFENAC DIETHYLAMINE) (GEL) [Concomitant]

REACTIONS (4)
  - Anxiety [None]
  - Vision blurred [None]
  - Headache [None]
  - Fatigue [None]
